FAERS Safety Report 9772526 (Version 1)
Quarter: 2013Q4

REPORT INFORMATION
  Report Type: Spontaneous
  Country: GB (occurrence: GB)
  Receive Date: 20131219
  Receipt Date: 20131219
  Transmission Date: 20140711
  Serious: Yes (Hospitalization)
  Sender: FDA-Public Use
  Company Number: GB-TEVA-450581ISR

PATIENT
  Age: 63 Year
  Sex: Male

DRUGS (9)
  1. AMIODARONE [Suspect]
     Indication: ATRIAL FIBRILLATION
     Dosage: OVER 1 HOUR. IN 500ML FLUID. ADMINISTERED INTO ANTECUBICAL FOSSA VENFLON.
     Route: 041
     Dates: start: 20131119, end: 20131119
  2. METHADONE [Concomitant]
     Route: 048
  3. ASPIRIN [Concomitant]
  4. ATORVASTATIN [Concomitant]
  5. BISOPROLOL [Concomitant]
  6. LANSOPRAZOLE [Concomitant]
  7. SERETIDE [Concomitant]
  8. UNIPHYLLIN CONTINUS [Concomitant]
  9. CARBOCISTEINE [Concomitant]

REACTIONS (2)
  - Thrombophlebitis [Recovering/Resolving]
  - Contusion [Recovering/Resolving]
